FAERS Safety Report 5497841-9 (Version None)
Quarter: 2007Q4

REPORT INFORMATION
  Report Type: 
  Country: None (occurrence: None)
  Receive Date: 20071025
  Receipt Date: 20070322
  Transmission Date: 20080405
  Serious: No
  Sender: FDA-Public Use
  Company Number: A0642438A

PATIENT
  Age: 15 Year
  Sex: Female
  Weight: 44.1 kg

DRUGS (3)
  1. ADVAIR DISKUS 100/50 [Suspect]
     Indication: ASTHMA
     Route: 055
  2. ADDERALL 10 [Concomitant]
  3. SINGULAIR [Concomitant]
     Route: 048

REACTIONS (9)
  - DIZZINESS [None]
  - HEADACHE [None]
  - HEART RATE INCREASED [None]
  - HYPERVENTILATION [None]
  - HYPOAESTHESIA FACIAL [None]
  - PALPITATIONS [None]
  - PARAESTHESIA [None]
  - TREATMENT NONCOMPLIANCE [None]
  - VISUAL DISTURBANCE [None]
